FAERS Safety Report 17852924 (Version 1)
Quarter: 2020Q2

REPORT INFORMATION
  Report Type: Spontaneous
  Country: JP (occurrence: JP)
  Receive Date: 20200603
  Receipt Date: 20200603
  Transmission Date: 20200714
  Serious: Yes (Other)
  Sender: FDA-Public Use
  Company Number: JP-SUN PHARMACEUTICAL INDUSTRIES LTD-2020RR-249111

PATIENT
  Age: 65 Year
  Sex: Male

DRUGS (2)
  1. GEMCITABINE. [Suspect]
     Active Substance: GEMCITABINE
     Indication: PANCREATIC CARCINOMA STAGE III
     Dosage: 3-WEEK ADMINISTRATION, 1-WEEK OFF), DISCONTINUED AFTER 2 COURSES
     Route: 065
  2. NAB-PACLITAXEL [Suspect]
     Active Substance: PACLITAXEL
     Indication: PANCREATIC CARCINOMA STAGE III
     Dosage: 3-WEEK ADMINISTRATION, 1-WEEK OFF, DISCONTINUED AFTER 2 COURSES
     Route: 065

REACTIONS (1)
  - Lung opacity [Unknown]
